FAERS Safety Report 12508214 (Version 2)
Quarter: 2016Q3

REPORT INFORMATION
  Report Type: Spontaneous
  Country: US (occurrence: US)
  Receive Date: 20160629
  Receipt Date: 20160825
  Transmission Date: 20161109
  Serious: No
  Sender: FDA-Public Use
  Company Number: US-GLAXOSMITHKLINE-US2016092153

PATIENT
  Age: 38 Year
  Sex: Female

DRUGS (1)
  1. SENSODYNE COMPLETE PROTECTION EXTRA FRESH [Suspect]
     Active Substance: STANNOUS FLUORIDE
     Indication: SENSITIVITY OF TEETH
     Dosage: UNK

REACTIONS (3)
  - Sensitivity of teeth [Recovered/Resolved]
  - Condition aggravated [Recovered/Resolved]
  - Toothache [Recovered/Resolved]
